FAERS Safety Report 5325421-4 (Version None)
Quarter: 2007Q2

REPORT INFORMATION
  Report Type: 
  Country: None (occurrence: None)
  Receive Date: 20070515
  Receipt Date: 20070507
  Transmission Date: 20071010
  Serious: Yes (Hospitalization, Other)
  Sender: FDA-Public Use
  Company Number: BE-ABBOTT-07P-013-0367229-00

PATIENT
  Sex: Male

DRUGS (2)
  1. HUMIRA [Suspect]
     Indication: RHEUMATOID ARTHRITIS
     Route: 058
     Dates: start: 20050221, end: 20060910
  2. HUMIRA [Suspect]
     Route: 058
     Dates: start: 20061010

REACTIONS (3)
  - FUNGAL INFECTION [None]
  - INTERVERTEBRAL DISC OPERATION [None]
  - NEPHROLITHIASIS [None]
